FAERS Safety Report 23405929 (Version 1)
Quarter: 2024Q1

REPORT INFORMATION
  Report Type: Spontaneous
  Country: US (occurrence: None)
  Receive Date: 20240114
  Receipt Date: 20240114
  Transmission Date: 20240409
  Serious: Yes (Other)
  Sender: FDA-Public Use
  Company Number: None

PATIENT
  Age: 5 Year
  Sex: Female
  Weight: 17.1 kg

DRUGS (3)
  1. CEFDINIR [Suspect]
     Active Substance: CEFDINIR
     Indication: Pharyngitis streptococcal
     Dosage: OTHER QUANTITY : 1 LIQUID;?FREQUENCY : DAILY;?
     Route: 048
     Dates: start: 20240105, end: 20240107
  2. Nature^s nutrition kids fiber gummies [Concomitant]
  3. lil critters gummy multivitamin [Concomitant]

REACTIONS (4)
  - Headache [None]
  - Nausea [None]
  - Abdominal pain upper [None]
  - Adverse drug reaction [None]

NARRATIVE: CASE EVENT DATE: 20240106
